FAERS Safety Report 7529976-0 (Version None)
Quarter: 2011Q2

REPORT INFORMATION
  Report Type: 
  Country: None (occurrence: None)
  Receive Date: 20110607
  Receipt Date: 20110601
  Transmission Date: 20111010
  Serious: Yes (Disabling)
  Sender: FDA-Public Use
  Company Number: US-MERCK-1106USA00374

PATIENT
  Age: 85 Year
  Sex: Female

DRUGS (1)
  1. FOSAMAX [Suspect]
     Route: 048
     Dates: start: 20000101, end: 20090101

REACTIONS (4)
  - OSTEOPOROSIS [None]
  - FEMUR FRACTURE [None]
  - OSTEOGENESIS IMPERFECTA [None]
  - LOW TURNOVER OSTEOPATHY [None]
